FAERS Safety Report 5385132-6 (Version None)
Quarter: 2007Q3

REPORT INFORMATION
  Report Type: 
  Country: None (occurrence: None)
  Receive Date: 20070706
  Receipt Date: 20070706
  Transmission Date: 20080115
  Serious: Yes (Life-Threatening, Hospitalization)
  Sender: FDA-Public Use
  Company Number: None

PATIENT
  Sex: Male

DRUGS (6)
  1. ZIPRASIDONE HCL [Suspect]
     Indication: SCHIZOPHRENIA, PARANOID TYPE
     Dosage: 80 MG BID PO
     Route: 048
  2. CLOZAPINE [Suspect]
     Indication: SCHIZOPHRENIA, PARANOID TYPE
     Dosage: 100MG BID PLUS 400 MG HS PO
     Route: 048
  3. TRIFLUOPERAZINE HCL [Suspect]
     Dosage: 10 MG PO QHS
     Route: 048
  4. DEPAKOTE ER [Concomitant]
  5. COGENTIN [Concomitant]
  6. ZOLOFT [Concomitant]

REACTIONS (6)
  - DYSSTASIA [None]
  - HYPOTENSION [None]
  - NEUROLEPTIC MALIGNANT SYNDROME [None]
  - ORAL INTAKE REDUCED [None]
  - RENAL FAILURE ACUTE [None]
  - RHABDOMYOLYSIS [None]
